FAERS Safety Report 6662029-2 (Version None)
Quarter: 2010Q1

REPORT INFORMATION
  Report Type: 
  Country: None (occurrence: None)
  Receive Date: 20100331
  Receipt Date: 20100106
  Transmission Date: 20100710
  Serious: No
  Sender: FDA-Public Use
  Company Number: US-BRISTOL-MYERS SQUIBB COMPANY-14923627

PATIENT
  Age: 60 Year
  Sex: Female
  Weight: 54 kg

DRUGS (5)
  1. ERBITUX [Suspect]
     Indication: HEAD AND NECK CANCER
     Dosage: DOSE VIA LEFT ANTECUBITAL;400MG INFUSIONS UNTIL 5TH INFUSION (16-DEC-2009);7TH INF:30DEC09
     Dates: start: 20091118
  2. ERBITUX [Suspect]
     Indication: RADIOSENSITISATION THERAPY
     Dosage: DOSE VIA LEFT ANTECUBITAL;400MG INFUSIONS UNTIL 5TH INFUSION (16-DEC-2009);7TH INF:30DEC09
     Dates: start: 20091118
  3. TYLENOL-500 [Concomitant]
     Indication: PREMEDICATION
  4. CLARITIN [Concomitant]
     Indication: PREMEDICATION
  5. HIBICLENS [Concomitant]

REACTIONS (1)
  - RASH [None]
